FAERS Safety Report 19237798 (Version 1)
Quarter: 2021Q2

REPORT INFORMATION
  Report Type: Report from Study
  Country: US (occurrence: US)
  Receive Date: 20210510
  Receipt Date: 20210510
  Transmission Date: 20210717
  Serious: Yes (Other)
  Sender: FDA-Public Use
  Company Number: US-BRISTOL-MYERS SQUIBB COMPANY-BMS-2021-043693

PATIENT
  Age: 66 Year
  Sex: Male
  Weight: 104.1 kg

DRUGS (3)
  1. IPILIMUMAB [Suspect]
     Active Substance: IPILIMUMAB
     Indication: HODGKIN^S DISEASE
     Dosage: 1MG/KG ON DAY 1, Q12 WEEKS UP TO 9 DOSES
     Route: 042
     Dates: start: 20200917, end: 20210304
  2. BRENTUXIMAB VEDOTIN [Suspect]
     Active Substance: BRENTUXIMAB VEDOTIN
     Indication: HODGKIN^S DISEASE
     Dosage: 1.8 MG/KG ON DAY 1 (CYCLES 1?16)
     Route: 042
     Dates: start: 20200917, end: 20210211
  3. NIVOLUMAB [Suspect]
     Active Substance: NIVOLUMAB
     Indication: HODGKIN^S DISEASE
     Dosage: 360 MG (3MG/KG PEDIATRIC) ON DAY 1 (CYCLES 1?34)
     Route: 042
     Dates: start: 20200917, end: 20210325

REACTIONS (2)
  - Peripheral motor neuropathy [Not Recovered/Not Resolved]
  - Hyporeflexia [Not Recovered/Not Resolved]

NARRATIVE: CASE EVENT DATE: 20210325
